FAERS Safety Report 8295141-5 (Version None)
Quarter: 2012Q2

REPORT INFORMATION
  Report Type: 
  Country: None (occurrence: None)
  Receive Date: 20120418
  Receipt Date: 20120418
  Transmission Date: 20120825
  Serious: Yes (Other)
  Sender: FDA-Public Use
  Company Number: US-PFIZER INC-2012090385

PATIENT
  Age: 63 Year
  Sex: Male

DRUGS (1)
  1. VIAGRA [Suspect]
     Dosage: 50MG, TWO TABLETS
     Route: 048
     Dates: start: 20120401

REACTIONS (11)
  - BLOOD PRESSURE ABNORMAL [None]
  - PRURITUS [None]
  - FEELING ABNORMAL [None]
  - MALAISE [None]
  - ARTHROPATHY [None]
  - MUSCULOSKELETAL STIFFNESS [None]
  - EPISTAXIS [None]
  - FEELING HOT [None]
  - MUSCLE SPASMS [None]
  - PALPITATIONS [None]
  - MYALGIA [None]
